FAERS Safety Report 20909491 (Version 2)
Quarter: 2022Q2

REPORT INFORMATION
  Report Type: Spontaneous
  Country: US (occurrence: US)
  Receive Date: 20220603
  Receipt Date: 20220622
  Transmission Date: 20220721
  Serious: Yes (Other)
  Sender: FDA-Public Use
  Company Number: US-BAUSCH-BL-2022-013246

PATIENT
  Age: 80 Year
  Sex: Female
  Weight: 67.1 kg

DRUGS (11)
  1. LOTEMAX [Suspect]
     Active Substance: LOTEPREDNOL ETABONATE
     Indication: Dry eye
     Route: 047
     Dates: end: 202204
  2. LOTEMAX [Suspect]
     Active Substance: LOTEPREDNOL ETABONATE
     Route: 047
     Dates: start: 202204
  3. VARENICLINE [Suspect]
     Active Substance: VARENICLINE
     Indication: Dry eye
     Dosage: TYRVAYA (VARENICLINE), 1 SPRAY IN EACH NOSTRIL
     Route: 045
     Dates: start: 202204
  4. RESTASIS [Concomitant]
     Active Substance: CYCLOSPORINE
     Indication: Product used for unknown indication
     Route: 065
     Dates: end: 202204
  5. RESTASIS [Concomitant]
     Active Substance: CYCLOSPORINE
     Route: 065
     Dates: start: 202204
  6. ELIQUIS [Concomitant]
     Active Substance: APIXABAN
     Indication: Product used for unknown indication
     Route: 065
     Dates: end: 202204
  7. ELIQUIS [Concomitant]
     Active Substance: APIXABAN
     Dosage: ]
     Route: 065
     Dates: start: 202204
  8. METOPROLOL [Concomitant]
     Active Substance: METOPROLOL
     Indication: Product used for unknown indication
     Route: 065
     Dates: end: 202204
  9. METOPROLOL [Concomitant]
     Active Substance: METOPROLOL
     Dosage: ]
     Route: 065
     Dates: start: 202204
  10. SYNTHROID [Concomitant]
     Active Substance: LEVOTHYROXINE SODIUM
     Indication: Product used for unknown indication
     Route: 065
     Dates: end: 202204
  11. SYNTHROID [Concomitant]
     Active Substance: LEVOTHYROXINE SODIUM
     Dosage: ]
     Route: 065
     Dates: start: 202204

REACTIONS (6)
  - Eye haemorrhage [Recovered/Resolved]
  - Sneezing [Recovered/Resolved]
  - Instillation site erythema [Recovered/Resolved]
  - Visual impairment [Recovered/Resolved]
  - Headache [Recovered/Resolved]
  - Device delivery system issue [Unknown]

NARRATIVE: CASE EVENT DATE: 20220401
